FAERS Safety Report 26112036 (Version 1)
Quarter: 2025Q4

REPORT INFORMATION
  Report Type: Spontaneous
  Country: US (occurrence: US)
  Receive Date: 20251202
  Receipt Date: 20251202
  Transmission Date: 20260118
  Serious: No
  Sender: TEVA
  Company Number: US-TEVA-VS-3396782

PATIENT
  Age: 35 Year
  Sex: Female

DRUGS (1)
  1. ADDERALL [Suspect]
     Active Substance: AMPHETAMINE ASPARTATE\AMPHETAMINE SULFATE\DEXTROAMPHETAMINE SACCHARATE\DEXTROAMPHETAMINE SULFATE
     Indication: Attention deficit hyperactivity disorder
     Route: 065
     Dates: start: 20251106

REACTIONS (9)
  - Constipation [Unknown]
  - Drug ineffective [Unknown]
  - Product physical issue [Unknown]
  - Dizziness [Unknown]
  - Anxiety [Unknown]
  - Cognitive disorder [Unknown]
  - Brain fog [Unknown]
  - Aphasia [Unknown]
  - Impaired quality of life [Unknown]

NARRATIVE: CASE EVENT DATE: 20251101
